FAERS Safety Report 16432415 (Version 1)
Quarter: 2019Q3

REPORT INFORMATION
  Report Type: Spontaneous
  Country: US (occurrence: US)
  Receive Date: 20190614
  Receipt Date: 20190614
  Transmission Date: 20191004
  Serious: Yes (Disabling)
  Sender: FDA-Public Use
  Company Number: None

PATIENT
  Sex: Female

DRUGS (1)
  1. REPATHA [Suspect]
     Active Substance: EVOLOCUMAB
     Indication: BLOOD CHOLESTEROL INCREASED
     Dosage: ?          OTHER FREQUENCY:ONCE PER WEEK;OTHER ROUTE:INJECTED INTO THE STOMACH?

REACTIONS (4)
  - Pain in extremity [None]
  - Back pain [None]
  - Skin erosion [None]
  - Gait inability [None]
